FAERS Safety Report 19678922 (Version 1)
Quarter: 2021Q3

REPORT INFORMATION
  Report Type: Spontaneous
  Country: US (occurrence: US)
  Receive Date: 20210809
  Receipt Date: 20210809
  Transmission Date: 20211014
  Serious: No
  Sender: FDA-Public Use
  Company Number: US-PFIZER INC-2021498813

PATIENT
  Age: 56 Year
  Sex: Female
  Weight: 45.35 kg

DRUGS (1)
  1. SUTENT [Suspect]
     Active Substance: SUNITINIB MALATE
     Indication: GASTROINTESTINAL STROMAL TUMOUR
     Dosage: 50 MG,CYCLIC DAILY (28 DAYS, 14 DAYS BREAK)
     Route: 048
     Dates: start: 20210331, end: 20210412

REACTIONS (13)
  - Vomiting [Unknown]
  - Impaired work ability [Unknown]
  - Chills [Unknown]
  - Decreased appetite [Unknown]
  - Headache [Unknown]
  - Muscular weakness [Unknown]
  - Hypertension [Unknown]
  - Platelet count decreased [Unknown]
  - Diarrhoea [Unknown]
  - Oral pain [Unknown]
  - Fatigue [Unknown]
  - Yellow skin [Unknown]
  - White blood cell count decreased [Unknown]

NARRATIVE: CASE EVENT DATE: 2021
